FAERS Safety Report 11438159 (Version 1)
Quarter: 2015Q3

REPORT INFORMATION
  Report Type: Other
  Country: IT (occurrence: IT)
  Receive Date: 20150901
  Receipt Date: 20150901
  Transmission Date: 20151125
  Serious: Yes (Other)
  Sender: FDA-Public Use
  Company Number: IT-NOVEN PHARMACEUTICALS, INC.-14IT010219

PATIENT
  Age: 36 Year
  Sex: Male

DRUGS (3)
  1. PARACETAMOL [Concomitant]
     Active Substance: ACETAMINOPHEN
     Indication: DRUG ABUSE
     Dosage: 3000 MG, TOTAL
     Dates: start: 20140802, end: 20140802
  2. PAROXETINE [Suspect]
     Active Substance: PAROXETINE\PAROXETINE HYDROCHLORIDE
     Indication: DRUG ABUSE
     Dosage: 2 DF, TOTAL (20 MG FILM-COATED TABLETS)
     Route: 048
     Dates: start: 20140802, end: 20140802
  3. TOLEP [Concomitant]
     Active Substance: OXCARBAZEPINE
     Indication: DRUG ABUSE
     Dosage: 10 DF, TOTAL (300 MG TABLETS)
     Route: 048
     Dates: start: 20140802, end: 20140802

REACTIONS (3)
  - Sopor [Recovering/Resolving]
  - Drug abuse [Recovering/Resolving]
  - Hyperhidrosis [Recovering/Resolving]

NARRATIVE: CASE EVENT DATE: 20140802
